FAERS Safety Report 9575208 (Version 7)
Quarter: 2014Q2

REPORT INFORMATION
  Report Type: Spontaneous
  Country: CA (occurrence: CA)
  Receive Date: 20131001
  Receipt Date: 20140609
  Transmission Date: 20141212
  Serious: Yes (Other)
  Sender: FDA-Public Use
  Company Number: CA-GLAXOSMITHKLINE-A1031809A

PATIENT
  Sex: Female
  Weight: 79.2 kg

DRUGS (1)
  1. BENLYSTA [Suspect]
     Indication: SYSTEMIC LUPUS ERYTHEMATOSUS
     Dosage: 718MG SEE DOSAGE TEXT
     Route: 042
     Dates: start: 20130606

REACTIONS (14)
  - Urinary tract infection [Unknown]
  - Fatigue [Unknown]
  - Nasopharyngitis [Recovered/Resolved]
  - Chills [Unknown]
  - Diarrhoea [Unknown]
  - Infection [Unknown]
  - Rhinorrhoea [Recovered/Resolved]
  - Cough [Recovered/Resolved]
  - Lung infection [Unknown]
  - Mental disorder [Unknown]
  - Nasal congestion [Unknown]
  - Malaise [Unknown]
  - Chest discomfort [Unknown]
  - Sinusitis [Unknown]
